FAERS Safety Report 10308903 (Version 1)
Quarter: 2014Q3

REPORT INFORMATION
  Report Type: Spontaneous
  Country: US (occurrence: US)
  Receive Date: 20140716
  Receipt Date: 20140716
  Transmission Date: 20150326
  Serious: Yes (Death, Other)
  Sender: FDA-Public Use
  Company Number: US-TEVA-493727USA

PATIENT
  Sex: Male

DRUGS (1)
  1. CICLOSPORIN [Suspect]
     Active Substance: CYCLOSPORINE

REACTIONS (1)
  - Death [Fatal]
